FAERS Safety Report 13740830 (Version 3)
Quarter: 2017Q3

REPORT INFORMATION
  Report Type: Report from Study
  Country: US (occurrence: US)
  Receive Date: 20170711
  Receipt Date: 20170905
  Transmission Date: 20171127
  Serious: No
  Sender: FDA-Public Use
  Company Number: PHEH2017US020993

PATIENT
  Sex: Female

DRUGS (1)
  1. TASIGNA [Suspect]
     Active Substance: NILOTINIB
     Indication: PRODUCT USED FOR UNKNOWN INDICATION
     Route: 065

REACTIONS (8)
  - Nasopharyngitis [Unknown]
  - Fluid retention [Unknown]
  - Infection [Unknown]
  - Hypersensitivity [Unknown]
  - Dyspnoea [Unknown]
  - Muscle spasms [Unknown]
  - Somnolence [Unknown]
  - Malaise [Unknown]
